FAERS Safety Report 5171264-4 (Version None)
Quarter: 2006Q4

REPORT INFORMATION
  Report Type: 
  Country: None (occurrence: None)
  Receive Date: 20061213
  Receipt Date: 20060912
  Transmission Date: 20070319
  Serious: Yes (Other)
  Sender: FDA-Public Use
  Company Number: US-AMGEN-KDL193517

PATIENT
  Sex: Female
  Weight: 61.7 kg

DRUGS (6)
  1. ENBREL [Suspect]
     Indication: RHEUMATOID ARTHRITIS
     Route: 058
     Dates: start: 20001120, end: 20060828
  2. ENBREL [Suspect]
     Indication: JUVENILE ARTHRITIS
  3. PLAQUENIL [Concomitant]
     Dates: start: 19581228
  4. FOSAMAX [Concomitant]
     Dates: start: 20001102
  5. CALCIUM [Concomitant]
     Dates: start: 20001101
  6. IBUPROFEN [Concomitant]

REACTIONS (1)
  - BASAL CELL CARCINOMA [None]
